FAERS Safety Report 5382276-X (Version None)
Quarter: 2007Q3

REPORT INFORMATION
  Report Type: 
  Country: None (occurrence: None)
  Receive Date: 20070709
  Receipt Date: 20070627
  Transmission Date: 20080115
  Serious: Yes (Other)
  Sender: FDA-Public Use
  Company Number: US-PFIZER INC-2007042150

PATIENT
  Sex: Female
  Weight: 56.818 kg

DRUGS (8)
  1. CHANTIX [Suspect]
     Indication: SMOKING CESSATION THERAPY
     Dates: start: 20070501, end: 20070522
  2. LIPITOR [Concomitant]
  3. SYNTHROID [Concomitant]
  4. AMBIEN [Concomitant]
     Indication: SLEEP DISORDER
  5. PROPRANOLOL [Concomitant]
     Indication: MIGRAINE
  6. MONTELUKAST SODIUM [Concomitant]
  7. VISTARIL [Concomitant]
  8. ADVAIR DISKUS 100/50 [Concomitant]
     Indication: ASTHMA

REACTIONS (8)
  - CONSTIPATION [None]
  - DISTURBANCE IN ATTENTION [None]
  - IMPAIRED WORK ABILITY [None]
  - INSOMNIA [None]
  - NAUSEA [None]
  - NIGHTMARE [None]
  - VERTIGO [None]
  - VOMITING [None]
